FAERS Safety Report 7837988 (Version 3)
Quarter: 2013Q4

REPORT INFORMATION
  Report Type: Report from Study
  Country: BR (occurrence: BR)
  Receive Date: 20110302
  Receipt Date: 20131107
  Transmission Date: 20140711
  Serious: Yes (Other)
  Sender: FDA-Public Use
  Company Number: BR-PFIZER INC-2011042670

PATIENT
  Age: 46 Year
  Sex: Male
  Weight: 106 kg

DRUGS (6)
  1. CHAMPIX [Suspect]
     Indication: TOBACCO USER
     Dosage: UNK
     Route: 048
     Dates: start: 20101127
  2. DIOVAN [Concomitant]
     Indication: BLOOD PRESSURE ABNORMAL
     Dosage: 320 MG, 1X/DAY
  3. DIOVAN [Concomitant]
     Indication: HYPERTENSION
  4. VENLAFAXINE HYDROCHLORIDE [Concomitant]
     Dosage: UNK, 1X/DAY IN THE MORNING
     Dates: start: 201012
  5. GLIFAGE [Concomitant]
     Indication: GLUCOSE TOLERANCE IMPAIRED
     Dosage: UNK
  6. NARCARICIN [Concomitant]
     Indication: BLOOD URIC ACID ABNORMAL
     Dosage: UNK

REACTIONS (5)
  - Nephrolithiasis [Not Recovered/Not Resolved]
  - Cholelithiasis [Not Recovered/Not Resolved]
  - Dependence [Unknown]
  - Abdominal discomfort [Unknown]
  - Weight decreased [Unknown]
